FAERS Safety Report 25074527 (Version 3)
Quarter: 2025Q2

REPORT INFORMATION
  Report Type: Spontaneous
  Country: ZA (occurrence: ZA)
  Receive Date: 20250313
  Receipt Date: 20250627
  Transmission Date: 20250717
  Serious: Yes (Death, Hospitalization)
  Sender: ROCHE
  Company Number: ZA-ROCHE-10000186875

PATIENT
  Age: 72 Year
  Sex: Male

DRUGS (2)
  1. TECENTRIQ [Suspect]
     Active Substance: ATEZOLIZUMAB
     Indication: Non-small cell lung cancer metastatic
     Dosage: STOP DATE AND TIME OF DURATION OF TREATMENT: 22-JAN-2025, 6 WEEKS, TWO INFUSIONS.
     Route: 042
     Dates: start: 20241210, end: 20241210
  2. LENALIDOMIDE [Concomitant]
     Active Substance: LENALIDOMIDE
     Indication: Plasma cell myeloma

REACTIONS (3)
  - Pneumonitis [Unknown]
  - Coronary artery disease [Fatal]
  - Lung disorder [Fatal]
